FAERS Safety Report 9838773 (Version 4)
Quarter: 2014Q3

REPORT INFORMATION
  Report Type: Spontaneous
  Country: FR (occurrence: FR)
  Receive Date: 20140123
  Receipt Date: 20140728
  Transmission Date: 20150326
  Serious: Yes (Other)
  Sender: FDA-Public Use
  Company Number: FR-TEVA-447576ISR

PATIENT
  Sex: Male

DRUGS (12)
  1. OXYNORM [Concomitant]
     Active Substance: OXYCODONE HYDROCHLORIDE
     Dosage: 6 DOSAGE FORMS DAILY; SOMETIMES UP TO 9 DF DAILY
  2. CREON [Concomitant]
     Active Substance: PANCRELIPASE AMYLASE\PANCRELIPASE LIPASE\PANCRELIPASE PROTEASE
     Dosage: 2 DOSAGE FORMS DAILY; IN THE EVENING
  3. ACTIQ [Suspect]
     Active Substance: FENTANYL CITRATE
     Indication: BREAKTHROUGH PAIN
     Dosage: 1600 MICROGRAM DAILY;
     Route: 048
     Dates: end: 201407
  4. CLARADOL CODEINE [Concomitant]
     Indication: PAIN
     Dosage: 6 TABLET DAILY;
     Route: 048
  5. ACTIQ [Suspect]
     Active Substance: FENTANYL CITRATE
     Indication: BACK DISORDER
     Dosage: 3200 MICROGRAM DAILY; SOMETIMES UP TO 5 A DAY I.E. 4000 MICROGRAM
     Route: 048
     Dates: end: 201407
  6. TOPALGIC 200 MG [Concomitant]
     Indication: PAIN
  7. DUROGESIC [Concomitant]
     Active Substance: FENTANYL
     Indication: PAIN
     Dosage: 50 MICROGRAM/HOUR OR 75 MICROGRAM/HOUR
     Route: 062
  8. CLARADOL CODEINE [Concomitant]
     Dosage: 8 TABLET DAILY;
     Route: 048
  9. CALTRATE VITAMINE D3 [Concomitant]
     Active Substance: CALCIUM CARBONATE\VITAMIN D
  10. TRANXENE T-TAB [Concomitant]
     Active Substance: CLORAZEPATE DIPOTASSIUM
  11. PROZAC [Concomitant]
     Active Substance: FLUOXETINE HYDROCHLORIDE
     Dosage: 2 DOSAGE FORMS DAILY; IN THE MORNING
  12. VALIUM 10 MG [Concomitant]
     Dosage: 10 MILLIGRAM DAILY; IN THE EVENING

REACTIONS (6)
  - Ileus paralytic [Not Recovered/Not Resolved]
  - Toothache [Not Recovered/Not Resolved]
  - Abdominal pain [Not Recovered/Not Resolved]
  - Neurodegenerative disorder [Not Recovered/Not Resolved]
  - Diarrhoea [Unknown]
  - Tooth loss [Not Recovered/Not Resolved]

NARRATIVE: CASE EVENT DATE: 2013
